FAERS Safety Report 5299118-3 (Version None)
Quarter: 2007Q2

REPORT INFORMATION
  Report Type: 
  Country: None (occurrence: None)
  Receive Date: 20070417
  Receipt Date: 20070411
  Transmission Date: 20071010
  Serious: Yes (Other)
  Sender: FDA-Public Use
  Company Number: SE-GLAXOSMITHKLINE-B0466561A

PATIENT
  Sex: Female

DRUGS (4)
  1. MALARONE [Suspect]
     Indication: PROPHYLAXIS
     Route: 065
  2. CONTRACEPTIVE PILL [Concomitant]
     Route: 065
  3. HIPREX [Concomitant]
     Indication: DRUG USE FOR UNKNOWN INDICATION
     Route: 065
  4. MALARIA MEDICATION [Concomitant]
     Indication: PROPHYLAXIS
     Route: 065

REACTIONS (2)
  - EPILEPSY [None]
  - POOR QUALITY SLEEP [None]
